FAERS Safety Report 5296611-4 (Version None)
Quarter: 2007Q2

REPORT INFORMATION
  Report Type: 
  Country: None (occurrence: None)
  Receive Date: 20070413
  Receipt Date: 20070405
  Transmission Date: 20071010
  Serious: Yes (Hospitalization, Other)
  Sender: FDA-Public Use
  Company Number: US-PFIZER INC-2006140502

PATIENT
  Sex: Male

DRUGS (2)
  1. CELEBREX [Suspect]
     Indication: ARTHRITIS
     Dates: start: 20010301, end: 20041102
  2. VIOXX [Suspect]
     Dates: start: 20040305, end: 20040908

REACTIONS (4)
  - ACUTE MYOCARDIAL INFARCTION [None]
  - AMNESIA [None]
  - CORONARY ARTERY OCCLUSION [None]
  - DEPRESSION [None]
